FAERS Safety Report 7402516-2 (Version None)
Quarter: 2011Q2

REPORT INFORMATION
  Report Type: 
  Country: None (occurrence: None)
  Receive Date: 20110408
  Receipt Date: 20110405
  Transmission Date: 20111010
  Serious: Yes (Death, Hospitalization)
  Sender: FDA-Public Use
  Company Number: PHHY2011AR28176

PATIENT
  Sex: Male

DRUGS (1)
  1. DIOVAN [Suspect]
     Indication: BLOOD PRESSURE
     Dosage: 1 DF, ONE TABLET DAILY (320 MG)
     Dates: start: 20100118

REACTIONS (3)
  - BEDRIDDEN [None]
  - GASTRIC CANCER [None]
  - DECREASED APPETITE [None]
